FAERS Safety Report 4274761-9 (Version None)
Quarter: 2004Q1

REPORT INFORMATION
  Report Type: 
  Country: None (occurrence: None)
  Receive Date: 20040116
  Receipt Date: 20040105
  Transmission Date: 20041129
  Serious: Yes (Hospitalization)
  Sender: FDA-Public Use
  Company Number: 2004-FF-00004FF

PATIENT
  Age: 77 Year
  Sex: Male

DRUGS (3)
  1. JOSIR (TAMSULOSIN) (NR) [Suspect]
     Dosage: PO
     Route: 048
     Dates: start: 20031012, end: 20031103
  2. PREVISCAN (FLUINDIONE) (TA) [Suspect]
     Dosage: 20 MG (MG) PO
     Route: 048
     Dates: start: 20031012, end: 20031030
  3. TAHOR (ATORVASTATIN CALCIUM) (NR) [Concomitant]

REACTIONS (4)
  - DIARRHOEA [None]
  - HEPATITIS [None]
  - PANCREATITIS [None]
  - VOMITING [None]
